FAERS Safety Report 13495241 (Version 2)
Quarter: 2017Q2

REPORT INFORMATION
  Report Type: Spontaneous
  Country: PT (occurrence: PT)
  Receive Date: 20170428
  Receipt Date: 20170523
  Transmission Date: 20170830
  Serious: Yes (Other)
  Sender: FDA-Public Use
  Company Number: PT-ASTELLAS-2017US015954

PATIENT
  Age: 33 Year
  Sex: Male

DRUGS (5)
  1. AMBISOME [Suspect]
     Active Substance: AMPHOTERICIN B
     Dosage: UNK, UNKNOWN FREQ.
     Route: 065
     Dates: start: 200901
  2. AMBISOME [Suspect]
     Active Substance: AMPHOTERICIN B
     Dosage: UNK, UNKNOWN FREQ.
     Route: 065
     Dates: start: 200804
  3. ALLOPURINOL. [Concomitant]
     Active Substance: ALLOPURINOL
     Indication: PRODUCT USED FOR UNKNOWN INDICATION
     Dosage: UNK UNK, UNKNOWN FREQ.
     Route: 065
     Dates: start: 2009
  4. MEGLUMINE ANTIMONATE [Concomitant]
     Active Substance: MEGLUMINE ANTIMONIATE
     Indication: PRODUCT USED FOR UNKNOWN INDICATION
     Dosage: UNK UNK, UNKNOWN FREQ.
     Route: 065
     Dates: start: 2009
  5. AMBISOME [Suspect]
     Active Substance: AMPHOTERICIN B
     Indication: VISCERAL LEISHMANIASIS
     Dosage: UNK, UNKNOWN FREQ.
     Route: 065
     Dates: start: 201311

REACTIONS (5)
  - Chest pain [Unknown]
  - Off label use [Recovered/Resolved]
  - Infusion related reaction [Unknown]
  - Drug ineffective [Unknown]
  - Visceral leishmaniasis [Unknown]

NARRATIVE: CASE EVENT DATE: 200901
